FAERS Safety Report 11812279 (Version 5)
Quarter: 2018Q2

REPORT INFORMATION
  Report Type: Report from Study
  Country: US (occurrence: US)
  Receive Date: 20151208
  Receipt Date: 20180612
  Transmission Date: 20180711
  Serious: Yes (Hospitalization, Other)
  Sender: FDA-Public Use
  Company Number: US-ACTELION-A-NJ2015-128430

PATIENT
  Age: 55 Year
  Sex: Female
  Weight: 88.44 kg

DRUGS (2)
  1. VENTAVIS [Suspect]
     Active Substance: ILOPROST
     Indication: PULMONARY ARTERIAL HYPERTENSION
     Dosage: 5.0 MCG, 6-9 TIMES PER DAY
     Route: 055
     Dates: start: 20140218
  2. SILDENAFIL CITRATE. [Concomitant]
     Active Substance: SILDENAFIL CITRATE

REACTIONS (12)
  - Dyspnoea [Recovering/Resolving]
  - Pneumonia [Recovering/Resolving]
  - Dyspnoea exertional [Not Recovered/Not Resolved]
  - Arthropod bite [Unknown]
  - Wheezing [Recovering/Resolving]
  - Asthma [Unknown]
  - Influenza [Unknown]
  - Pulmonary veno-occlusive disease [Unknown]
  - Cough [Recovering/Resolving]
  - Blood potassium decreased [Unknown]
  - Drug dose omission [Unknown]
  - Chronic obstructive pulmonary disease [Unknown]
